FAERS Safety Report 14789413 (Version 1)
Quarter: 2018Q2

REPORT INFORMATION
  Report Type: Spontaneous
  Country: US (occurrence: US)
  Receive Date: 20180423
  Receipt Date: 20180423
  Transmission Date: 20180711
  Serious: No
  Sender: FDA-Public Use
  Company Number: US-TEVA-761794ACC

PATIENT
  Age: 58 Year
  Sex: Male

DRUGS (2)
  1. OMEGA-3-ACID ETHYL ESTERS CAPSULES [Suspect]
     Active Substance: OMEGA-3-ACID ETHYL ESTERS
     Indication: BLOOD TRIGLYCERIDES DECREASED
     Dosage: 4 DOSAGE FORMS DAILY;
     Route: 048
     Dates: start: 20170301, end: 20170317
  2. FISH OIL [Concomitant]
     Active Substance: FISH OIL

REACTIONS (4)
  - Eye irritation [Recovered/Resolved]
  - Burning sensation [Recovered/Resolved]
  - Thermal burn [Recovered/Resolved]
  - Dysuria [Recovered/Resolved]
